FAERS Safety Report 14566230 (Version 3)
Quarter: 2018Q1

REPORT INFORMATION
  Report Type: Spontaneous
  Country: US (occurrence: US)
  Receive Date: 20180223
  Receipt Date: 20180312
  Transmission Date: 20180509
  Serious: No
  Sender: FDA-Public Use
  Company Number: US-PFIZER INC-2018073742

PATIENT
  Age: 72 Year
  Sex: Female

DRUGS (1)
  1. PREMARIN [Suspect]
     Active Substance: ESTROGENS, CONJUGATED
     Dosage: 0.3 MG, UNK
     Dates: start: 1998

REACTIONS (6)
  - Weight fluctuation [Unknown]
  - Anxiety [Unknown]
  - Suspected counterfeit product [Unknown]
  - Condition aggravated [Unknown]
  - Insomnia [Unknown]
  - Body temperature abnormal [Unknown]
